FAERS Safety Report 12677493 (Version 2)
Quarter: 2016Q4

REPORT INFORMATION
  Report Type: Spontaneous
  Country: IE (occurrence: IE)
  Receive Date: 20160823
  Receipt Date: 20161007
  Transmission Date: 20170207
  Serious: Yes (Death)
  Sender: FDA-Public Use
  Company Number: IE-PFIZER INC-2016397289

PATIENT
  Age: 77 Year
  Sex: Male

DRUGS (2)
  1. SUTENT [Suspect]
     Active Substance: SUNITINIB MALATE
     Indication: METASTATIC RENAL CELL CARCINOMA
     Dosage: 50 MG, CYCLIC ON 4/2 SCHEDULE
     Dates: start: 20100707, end: 20100915
  2. NEOMERCAZOLE [Concomitant]
     Active Substance: CARBIMAZOLE

REACTIONS (1)
  - Death [Fatal]
